FAERS Safety Report 25330002 (Version 1)
Quarter: 2025Q2

REPORT INFORMATION
  Report Type: Spontaneous
  Country: TR (occurrence: TR)
  Receive Date: 20250519
  Receipt Date: 20250519
  Transmission Date: 20250716
  Serious: Yes (Other)
  Sender: NOVARTIS
  Company Number: TR-002147023-NVSC2025TR078870

PATIENT
  Age: 39 Year
  Sex: Male

DRUGS (1)
  1. SECUKINUMAB [Suspect]
     Active Substance: SECUKINUMAB
     Indication: Ankylosing spondylitis
     Route: 065

REACTIONS (7)
  - Nodule [Unknown]
  - Discomfort [Unknown]
  - Bladder discomfort [Unknown]
  - Lung disorder [Recovering/Resolving]
  - Productive cough [Unknown]
  - Wheezing [Unknown]
  - Cough [Unknown]
